FAERS Safety Report 12009472 (Version 1)
Quarter: 2016Q1

REPORT INFORMATION
  Report Type: Spontaneous
  Country: US (occurrence: None)
  Receive Date: 20160203
  Receipt Date: 20160203
  Transmission Date: 20160526
  Serious: Yes (Hospitalization)
  Sender: FDA-Public Use
  Company Number: None

PATIENT
  Age: 48 Year
  Sex: Female

DRUGS (9)
  1. LORATADINE. [Concomitant]
     Active Substance: LORATADINE
  2. AZITHROMYCIN ANHYDROUS. [Concomitant]
     Active Substance: AZITHROMYCIN ANHYDROUS
  3. CEFDINIR. [Concomitant]
     Active Substance: CEFDINIR
  4. CLODERM [Concomitant]
     Active Substance: CLOCORTOLONE PIVALATE
  5. PREDNISONE. [Concomitant]
     Active Substance: PREDNISONE
  6. FLUTICASONE [Concomitant]
     Active Substance: FLUTICASONE\FLUTICASONE PROPIONATE
  7. IPATROPIUM [Concomitant]
  8. LUPRON DEPOT [Suspect]
     Active Substance: LEUPROLIDE ACETATE
     Indication: UTERINE LEIOMYOMA
     Route: 030
     Dates: start: 20131028, end: 201601
  9. AZELASTINE [Concomitant]
     Active Substance: AZELASTINE

REACTIONS (5)
  - Epistaxis [None]
  - Sinus disorder [None]
  - Hypothalamo-pituitary disorder [None]
  - Peripheral swelling [None]
  - Swelling [None]

NARRATIVE: CASE EVENT DATE: 201601
